FAERS Safety Report 8905974 (Version 1)
Quarter: 2012Q4

REPORT INFORMATION
  Report Type: 
  Country: US (occurrence: US)
  Receive Date: 20121109
  Receipt Date: 20121109
  Transmission Date: 20130627
  Serious: Yes (Other)
  Sender: FDA-Public Use
  Company Number: US-GLAXOSMITHKLINE-A0999732A

PATIENT
  Age: 68 Year
  Sex: Male

DRUGS (2)
  1. ADVAIR [Suspect]
     Indication: PRODUCT USED FOR UNKNOWN INDICATION
     Dosage: 1PUFF Twice per day
     Route: 055
  2. CONCURRENT MEDICATIONS [Concomitant]

REACTIONS (2)
  - Pharyngitis streptococcal [Unknown]
  - Drug administration error [Unknown]
